FAERS Safety Report 4457662-2 (Version None)
Quarter: 2004Q3

REPORT INFORMATION
  Report Type: 
  Country: None (occurrence: None)
  Receive Date: 20040922
  Receipt Date: 20040915
  Transmission Date: 20050211
  Serious: Yes (Hospitalization, Other)
  Sender: FDA-Public Use
  Company Number: 2003-07-3323

PATIENT
  Age: 39 Year
  Sex: Male

DRUGS (6)
  1. REBETOL [Suspect]
     Indication: HEPATITIS C
     Dosage: SEE IMAGE
     Route: 048
     Dates: start: 20030602, end: 20030613
  2. REBETOL [Suspect]
     Indication: HEPATITIS C
     Dosage: SEE IMAGE
     Route: 048
     Dates: start: 20030623, end: 20030715
  3. ROFERON-A [Suspect]
     Indication: HEPATITIS C
     Dosage: SEE IMAGE
     Route: 048
     Dates: start: 20030602, end: 20030613
  4. ROFERON-A [Suspect]
     Indication: HEPATITIS C
     Dosage: SEE IMAGE
     Route: 048
     Dates: start: 20030623, end: 20030715
  5. BACTRIM DS [Suspect]
     Dosage: ORAL
     Route: 048
     Dates: start: 20030521, end: 20030613
  6. NEUPOGEN [Concomitant]

REACTIONS (7)
  - ASTHENIA [None]
  - HYPERBILIRUBINAEMIA [None]
  - JAUNDICE [None]
  - LIVER DISORDER [None]
  - PANCYTOPENIA [None]
  - PORTAL HYPERTENSION [None]
  - SPLENOMEGALY [None]
